FAERS Safety Report 6894453-7 (Version None)
Quarter: 2010Q3

REPORT INFORMATION
  Report Type: 
  Country: None (occurrence: None)
  Receive Date: 20100728
  Receipt Date: 20100715
  Transmission Date: 20110219
  Serious: Yes (Life-Threatening)
  Sender: FDA-Public Use
  Company Number: 010130

PATIENT
  Age: 81 Year
  Sex: Female
  Weight: 153 kg

DRUGS (10)
  1. PLETAL [Suspect]
     Indication: CEREBRAL INFARCTION
     Dosage: 50 MG, QD ORAL
     Route: 048
     Dates: end: 20100614
  2. TEGRETOL [Suspect]
     Indication: BACK PAIN
     Dosage: 200 MG, QD ORAL
     Route: 048
     Dates: end: 20100614
  3. TICLOPIDINE HCL [Suspect]
     Indication: CEREBRAL INFARCTION
     Dosage: 100 MG, ORAL
     Route: 048
     Dates: end: 20100614
  4. ALLOPURINOL [Suspect]
     Indication: HYPERURICAEMIA
     Dosage: 100 MG, ORAL
     Route: 048
     Dates: end: 20100614
  5. SAWADOL L (ISOSORBIDE DINITRATE) TABLET [Concomitant]
  6. YODEL-S (SENNA EXTRACT) TABLET [Concomitant]
  7. IRBETAN (IRBESARTAN) TABLET [Concomitant]
  8. PRAVATIN (PRAVASTATIN SODIUM) TABLET [Concomitant]
  9. ALTAT (ROXATIDINE ACETATE HYDRCHLORIDE) CAPSULE [Concomitant]
  10. ATELEC (CILNIDIPINE) TABLET [Concomitant]

REACTIONS (1)
  - INTERSTITIAL LUNG DISEASE [None]
